FAERS Safety Report 16528423 (Version 2)
Quarter: 2020Q3

REPORT INFORMATION
  Report Type: Spontaneous
  Country: GB (occurrence: GB)
  Receive Date: 20190704
  Receipt Date: 20200420
  Transmission Date: 20201104
  Serious: Yes (Other)
  Sender: FDA-Public Use
  Company Number: PHHY2019GB151382

PATIENT
  Age: 77 Year
  Sex: Male
  Weight: 71.66 kg

DRUGS (10)
  1. ATIMOS MODULITE [Concomitant]
     Active Substance: FORMOTEROL FUMARATE
     Indication: CHRONIC OBSTRUCTIVE PULMONARY DISEASE
     Dosage: 12 UG, UNK
     Route: 055
  2. GLYCERYL TRINITRATE [Concomitant]
     Active Substance: NITROGLYCERIN
     Indication: ANGINA PECTORIS
     Dosage: 400 UG
     Route: 055
     Dates: start: 201904
  3. ADCAL?D3 [Suspect]
     Active Substance: CALCIUM CARBONATE\CHOLECALCIFEROL
     Indication: HIP FRACTURE
     Dosage: 2 DF, QD
     Route: 048
     Dates: start: 20170107, end: 20190605
  4. BETAHISTINE [Concomitant]
     Active Substance: BETAHISTINE
     Indication: EAR DISORDER
     Dosage: 16 MG, UNK
     Route: 048
     Dates: start: 2006
  5. OMEPRAZOLE. [Concomitant]
     Active Substance: OMEPRAZOLE
     Indication: GASTRIC ULCER
     Dosage: 20 MG, BID
     Route: 048
     Dates: start: 200510
  6. VENTOLIN [Concomitant]
     Active Substance: ALBUTEROL SULFATE
     Indication: CHRONIC OBSTRUCTIVE PULMONARY DISEASE
     Dosage: 100 UG, UNK
     Route: 051
     Dates: start: 2003
  7. WARFARIN [Concomitant]
     Active Substance: WARFARIN
     Indication: ATRIAL FIBRILLATION
     Dosage: 3 TO 4 MG, QD
     Route: 048
  8. IBANDRONIC ACID SANDOZ [Suspect]
     Active Substance: IBANDRONIC ACID
     Indication: HIP FRACTURE
     Dosage: 150 MG, QMO
     Route: 048
     Dates: start: 20170107, end: 20190605
  9. SPIRIVA [Concomitant]
     Active Substance: TIOTROPIUM BROMIDE MONOHYDRATE
     Indication: CHRONIC OBSTRUCTIVE PULMONARY DISEASE
     Dosage: 18 UG, QD
     Route: 055
     Dates: start: 2008
  10. CANDESARTAN. [Concomitant]
     Active Substance: CANDESARTAN
     Indication: HYPERTENSION
     Dosage: 8 MG, QD
     Route: 048
     Dates: start: 2005

REACTIONS (2)
  - Frequent bowel movements [Recovered/Resolved]
  - Haematochezia [Recovered/Resolved]
